FAERS Safety Report 5307682-0 (Version None)
Quarter: 2007Q2

REPORT INFORMATION
  Report Type: 
  Country: None (occurrence: None)
  Receive Date: 20070425
  Receipt Date: 20070413
  Transmission Date: 20071010
  Serious: Yes (Other)
  Sender: FDA-Public Use
  Company Number: US-PFIZER INC-2007004492

PATIENT
  Sex: Male
  Weight: 78 kg

DRUGS (13)
  1. CHANTIX [Suspect]
     Indication: SMOKING CESSATION THERAPY
  2. ALTACE [Concomitant]
  3. ACETYLSALICYLIC ACID SRT [Concomitant]
  4. LIPITOR [Concomitant]
  5. COREG [Concomitant]
  6. VITAMINS [Concomitant]
  7. OMACOR [Concomitant]
  8. GLUCOTROL [Concomitant]
  9. AVAPRO [Concomitant]
  10. NIASPAN [Concomitant]
  11. PERCOCET [Concomitant]
  12. PLAVIX [Concomitant]
  13. GLUCOPHAGE [Concomitant]

REACTIONS (4)
  - DRUG INEFFECTIVE [None]
  - INTERMITTENT CLAUDICATION [None]
  - NOCTURIA [None]
  - PROSTATIC SPECIFIC ANTIGEN INCREASED [None]
